FAERS Safety Report 10370718 (Version 2)
Quarter: 2014Q3

REPORT INFORMATION
  Report Type: Spontaneous
  Country: US (occurrence: US)
  Receive Date: 20140808
  Receipt Date: 20140924
  Transmission Date: 20150326
  Serious: Yes (Hospitalization)
  Sender: FDA-Public Use
  Company Number: US-ASTRAZENECA-2014SE55814

PATIENT
  Age: 358 Month
  Sex: Female
  Weight: 31.8 kg

DRUGS (7)
  1. SYMBICORT [Suspect]
     Active Substance: BUDESONIDE\FORMOTEROL FUMARATE DIHYDRATE
     Indication: CHRONIC OBSTRUCTIVE PULMONARY DISEASE
     Dosage: 160/4.5, 2 PUFFS BID
     Route: 050
  2. SYMBICORT [Suspect]
     Active Substance: BUDESONIDE\FORMOTEROL FUMARATE DIHYDRATE
     Indication: FIBROSIS
     Dosage: 160/4.5, 2 PUFFS BID
     Route: 050
  3. SYMBICORT [Suspect]
     Active Substance: BUDESONIDE\FORMOTEROL FUMARATE DIHYDRATE
     Indication: FIBROSIS
     Dosage: 80/4.5, 2 PUFFS BID
     Route: 050
  4. SYMBICORT [Suspect]
     Active Substance: BUDESONIDE\FORMOTEROL FUMARATE DIHYDRATE
     Indication: CHRONIC OBSTRUCTIVE PULMONARY DISEASE
     Dosage: 80/4.5, 2 PUFFS BID
     Route: 050
  5. VIATMINS OTC [Concomitant]
  6. ALBUTEROL. [Concomitant]
     Active Substance: ALBUTEROL
     Indication: CHRONIC OBSTRUCTIVE PULMONARY DISEASE
     Route: 050
     Dates: start: 1999
  7. ALBUTEROL. [Concomitant]
     Active Substance: ALBUTEROL
     Indication: FIBROSIS
     Route: 050
     Dates: start: 1999

REACTIONS (6)
  - Dyspnoea [Recovered/Resolved]
  - Adverse event [Recovered/Resolved]
  - Pneumonia [Not Recovered/Not Resolved]
  - Lethargy [Recovered/Resolved]
  - Off label use [Not Recovered/Not Resolved]
  - Drug dose omission [Unknown]

NARRATIVE: CASE EVENT DATE: 201406
